FAERS Safety Report 17279287 (Version 1)
Quarter: 2020Q1

REPORT INFORMATION
  Report Type: Spontaneous
  Country: US (occurrence: US)
  Receive Date: 20200116
  Receipt Date: 20200116
  Transmission Date: 20200409
  Serious: Yes (Other)
  Sender: FDA-Public Use
  Company Number: US-SMITH AND NEPHEW, INC-2019SMT00084

PATIENT
  Sex: Female
  Weight: 151.02 kg

DRUGS (3)
  1. COLLAGENASE SANTYL [Suspect]
     Active Substance: COLLAGENASE CLOSTRIDIUM HISTOLYTICUM
     Indication: SKIN EXFOLIATION
  2. COLLAGENASE SANTYL [Suspect]
     Active Substance: COLLAGENASE CLOSTRIDIUM HISTOLYTICUM
     Indication: WOUND
     Dosage: ENOUGH TO COVER A 3 X 4 X 0.3 CM WOUND, 1X/DAY
     Route: 061
     Dates: end: 20191030
  3. CLOBETASOL [Suspect]
     Active Substance: CLOBETASOL
     Indication: PYODERMA
     Dosage: UNK

REACTIONS (2)
  - Pyoderma gangrenosum [Unknown]
  - Application site pain [Recovered/Resolved]
